FAERS Safety Report 12882877 (Version 2)
Quarter: 2016Q4

REPORT INFORMATION
  Report Type: Spontaneous
  Country: US (occurrence: US)
  Receive Date: 20161025
  Receipt Date: 20161027
  Transmission Date: 20170207
  Serious: Yes (Hospitalization, Other)
  Sender: FDA-Public Use
  Company Number: US-009507513-1005USA00487

PATIENT
  Sex: Female
  Weight: 73.48 kg

DRUGS (7)
  1. CALCIUM (UNSPECIFIED) [Concomitant]
     Active Substance: CALCIUM
     Dosage: 1500 MG, QD
  2. ALENDRONATE SODIUM. [Suspect]
     Active Substance: ALENDRONATE SODIUM
     Indication: OSTEOPOROSIS
     Dosage: 70 MG, QW
     Route: 048
     Dates: start: 20070913, end: 200909
  3. VITAMIN E [Concomitant]
     Active Substance: .ALPHA.-TOCOPHEROL
  4. VITAMINS (UNSPECIFIED) [Concomitant]
     Active Substance: VITAMINS
  5. ASPIRIN. [Concomitant]
     Active Substance: ASPIRIN
     Dosage: UNK UNK, QOW
  6. FOSAMAX [Suspect]
     Active Substance: ALENDRONATE SODIUM
     Dosage: 70 MG, QW
     Route: 048
     Dates: start: 20020923, end: 200902
  7. FOSAMAX [Suspect]
     Active Substance: ALENDRONATE SODIUM
     Indication: OSTEOPOROSIS
     Dosage: 10 MG, QD
     Route: 048
     Dates: start: 20000626, end: 200207

REACTIONS (35)
  - Atelectasis [Unknown]
  - Anxiety [Unknown]
  - Tooth fracture [Unknown]
  - Nodule [Unknown]
  - Limb asymmetry [Unknown]
  - Aortic disorder [Unknown]
  - Hiatus hernia [Unknown]
  - Adverse drug reaction [Unknown]
  - Depression [Unknown]
  - Knee deformity [Unknown]
  - Tooth fracture [Unknown]
  - Ankle fracture [Unknown]
  - Temporomandibular joint syndrome [Unknown]
  - Radius fracture [Unknown]
  - Migraine [Unknown]
  - Injury [Unknown]
  - Dental necrosis [Unknown]
  - Tooth fracture [Unknown]
  - Dental caries [Unknown]
  - Oral pain [Unknown]
  - Tooth disorder [Unknown]
  - Abdominal discomfort [Unknown]
  - Femur fracture [Recovering/Resolving]
  - Blood pressure increased [Unknown]
  - Tooth fracture [Unknown]
  - Bone loss [Not Recovered/Not Resolved]
  - Pain in extremity [Unknown]
  - Pain in extremity [Unknown]
  - Injury [Unknown]
  - Fall [Unknown]
  - Femur fracture [Recovering/Resolving]
  - Femur fracture [Unknown]
  - Low turnover osteopathy [Unknown]
  - Stress [Unknown]
  - Cyst [Unknown]

NARRATIVE: CASE EVENT DATE: 200105
